FAERS Safety Report 4817156-9 (Version None)
Quarter: 2005Q4

REPORT INFORMATION
  Report Type: 
  Country: None (occurrence: None)
  Receive Date: 20051101
  Receipt Date: 20050929
  Transmission Date: 20060501
  Serious: Yes (Hospitalization)
  Sender: FDA-Public Use
  Company Number: JP-ROCHE-419814

PATIENT
  Age: 61 Year
  Sex: Female

DRUGS (5)
  1. XELODA [Suspect]
     Indication: BREAST CANCER
     Route: 048
  2. PRIMPERAN INJ [Suspect]
     Indication: ABDOMINAL DISCOMFORT
     Route: 065
  3. AROMASIN [Concomitant]
     Indication: BREAST CANCER
     Route: 048
  4. HYSRON [Concomitant]
     Route: 048
  5. AREDIA [Concomitant]

REACTIONS (2)
  - CEREBELLAR ATROPHY [None]
  - PARKINSONISM [None]
